FAERS Safety Report 18615316 (Version 1)
Quarter: 2020Q4

REPORT INFORMATION
  Report Type: Other
  Country: DE (occurrence: DE)
  Receive Date: 20201215
  Receipt Date: 20201215
  Transmission Date: 20210114
  Serious: Yes (Hospitalization, Other)
  Sender: FDA-Public Use
  Company Number: DE-LUPIN PHARMACEUTICALS INC.-2020-10199

PATIENT
  Age: 9 Year
  Sex: Male
  Weight: 30 kg

DRUGS (3)
  1. LEVETIRACETAM. [Suspect]
     Active Substance: LEVETIRACETAM
     Indication: PARTIAL SEIZURES
     Dosage: 1000 MILLIGRAM, BID
     Route: 048
     Dates: start: 201303
  2. APYDAN [OXCARBAZEPINE] [Suspect]
     Active Substance: OXCARBAZEPINE
     Dosage: UNK (DOSE INCREASED)
     Route: 048
  3. APYDAN [OXCARBAZEPINE] [Suspect]
     Active Substance: OXCARBAZEPINE
     Indication: PARTIAL SEIZURES
     Dosage: 300 MILLIGRAM, BID (1-0-1) (EVERY 12 HOUR)
     Route: 048
     Dates: start: 201310

REACTIONS (2)
  - Oxygen saturation decreased [Unknown]
  - Status epilepticus [Unknown]

NARRATIVE: CASE EVENT DATE: 20191213
